FAERS Safety Report 9466704 (Version 2)
Quarter: 2013Q3

REPORT INFORMATION
  Report Type: Spontaneous
  Country: DK (occurrence: FR)
  Receive Date: 20130820
  Receipt Date: 20130911
  Transmission Date: 20140515
  Serious: Yes (Hospitalization)
  Sender: FDA-Public Use
  Company Number: FR-FRI-1000047931

PATIENT
  Age: 57 Year
  Sex: Female

DRUGS (5)
  1. CITALOPRAM [Suspect]
     Route: 048
     Dates: end: 20130618
  2. ALPRAZOLAM [Suspect]
     Route: 048
     Dates: end: 20130618
  3. DAFALGAN CODEINE [Suspect]
     Dosage: 6 BOXES
     Route: 048
     Dates: end: 20130618
  4. ZOPICLONE [Suspect]
     Route: 048
     Dates: end: 20130618
  5. ALCOHOL [Concomitant]

REACTIONS (7)
  - Vomiting [Recovered/Resolved]
  - Hypokalaemia [Recovered/Resolved]
  - Supraventricular extrasystoles [Recovered/Resolved]
  - Somnolence [Recovered/Resolved]
  - Hepatitis [Recovered/Resolved]
  - Renal failure [Recovered/Resolved]
  - Intentional overdose [Recovered/Resolved]
